FAERS Safety Report 15110721 (Version 1)
Quarter: 2018Q3

REPORT INFORMATION
  Report Type: Spontaneous
  Country: JP (occurrence: JP)
  Receive Date: 20180705
  Receipt Date: 20180705
  Transmission Date: 20181010
  Serious: Yes (Other)
  Sender: FDA-Public Use
  Company Number: JP-PFIZER INC-2018265014

PATIENT

DRUGS (1)
  1. SELARA [Suspect]
     Active Substance: EPLERENONE

REACTIONS (1)
  - Cardiac failure [Unknown]
